FAERS Safety Report 16509742 (Version 6)
Quarter: 2019Q3

REPORT INFORMATION
  Report Type: Spontaneous
  Country: KZ (occurrence: KZ)
  Receive Date: 20190701
  Receipt Date: 20190812
  Transmission Date: 20191004
  Serious: Yes (Death)
  Sender: FDA-Public Use
  Company Number: PHHY2019KZ131121

PATIENT
  Age: 48 Year
  Sex: Male

DRUGS (4)
  1. PENICILLIN G BENZATHINE [Suspect]
     Active Substance: PENICILLIN G BENZATHINE
     Indication: CUTANEOUS ANTHRAX
     Dosage: 1000000 IU, Q4H
     Route: 042
  2. CIPROFLOXACIN. [Suspect]
     Active Substance: CIPROFLOXACIN
     Indication: CUTANEOUS ANTHRAX
     Dosage: 500 MG, BID
     Route: 041
  3. CIPROFLOXACIN. [Suspect]
     Active Substance: CIPROFLOXACIN
     Dosage: 400 MG, BID
     Route: 042
  4. CEFTRIAXONE. [Suspect]
     Active Substance: CEFTRIAXONE
     Indication: CUTANEOUS ANTHRAX
     Dosage: 2 G, BID
     Route: 041

REACTIONS (11)
  - Cutaneous anthrax [Fatal]
  - Haematemesis [Fatal]
  - Blister [Fatal]
  - General physical health deterioration [Fatal]
  - Oedema peripheral [Fatal]
  - Diarrhoea [Fatal]
  - Bacterial toxaemia [Fatal]
  - Gastrointestinal haemorrhage [Fatal]
  - Cardio-respiratory arrest [Fatal]
  - Toxic shock syndrome [Fatal]
  - Oedema [Fatal]

NARRATIVE: CASE EVENT DATE: 20180921
